FAERS Safety Report 19690631 (Version 2)
Quarter: 2021Q3

REPORT INFORMATION
  Report Type: Spontaneous
  Country: IN (occurrence: IN)
  Receive Date: 20210812
  Receipt Date: 20210913
  Transmission Date: 20211014
  Serious: Yes (Disabling, Other)
  Sender: FDA-Public Use
  Company Number: IN-ACCORD-235165

PATIENT
  Age: 43 Year
  Sex: Female

DRUGS (1)
  1. TOPIRAMATE. [Suspect]
     Active Substance: TOPIRAMATE
     Indication: MIGRAINE
     Route: 048

REACTIONS (4)
  - Narrow anterior chamber angle [Recovered/Resolved]
  - Hypotony of eye [Recovered/Resolved]
  - Choroidal detachment [Recovered/Resolved]
  - Uveitis [Recovered/Resolved]
